FAERS Safety Report 5935235-X (Version None)
Quarter: 2008Q4

REPORT INFORMATION
  Report Type: 
  Country: None (occurrence: None)
  Receive Date: 20081030
  Receipt Date: 20081027
  Transmission Date: 20090506
  Serious: Yes (Hospitalization)
  Sender: FDA-Public Use
  Company Number: DE-WYE-G02443308

PATIENT
  Age: 46 Year
  Sex: Female
  Weight: 60 kg

DRUGS (2)
  1. RAPAMUNE [Suspect]
     Indication: PROPHYLAXIS AGAINST TRANSPLANT REJECTION
     Route: 048
     Dates: start: 20070531, end: 20080404
  2. CYCLOSPORINE [Concomitant]
     Route: 048
     Dates: start: 20080404, end: 20080525

REACTIONS (2)
  - OVARIAN ADENOMA [None]
  - OVARIAN ADHESION [None]
